FAERS Safety Report 5532988-X (Version None)
Quarter: 2007Q4

REPORT INFORMATION
  Report Type: 
  Country: None (occurrence: None)
  Receive Date: 20071204
  Receipt Date: 20071126
  Transmission Date: 20080405
  Serious: Yes (Hospitalization)
  Sender: FDA-Public Use
  Company Number: US-ROCHE-533561

PATIENT
  Age: 57 Year
  Sex: Female
  Weight: 65.8 kg

DRUGS (10)
  1. BONIVA [Suspect]
     Indication: OSTEOPOROSIS
     Route: 048
     Dates: start: 20060201, end: 20070201
  2. BONIVA [Suspect]
     Route: 048
     Dates: start: 20071126
  3. LISINOPRIL [Concomitant]
  4. MEPROLOL [Concomitant]
  5. FOLIC ACID [Concomitant]
  6. ASPIRIN [Concomitant]
  7. MULTIVITAMIN NOS [Concomitant]
  8. 1 CONCOMITANT UNSPECIFIED DRUG [Concomitant]
     Dosage: OMEGA 3 SUPER B COMPLEX
  9. CALTRATE [Concomitant]
  10. ACETAMINOPHEN AND OXYCODONE HCL [Concomitant]
     Dosage: OXY-APAP

REACTIONS (3)
  - INTRACRANIAL ANEURYSM [None]
  - NO ADVERSE EVENT [None]
  - WRONG TECHNIQUE IN DRUG USAGE PROCESS [None]
